FAERS Safety Report 20738501 (Version 2)
Quarter: 2022Q2

REPORT INFORMATION
  Report Type: Spontaneous
  Country: GR (occurrence: GR)
  Receive Date: 20220422
  Receipt Date: 20220509
  Transmission Date: 20220720
  Serious: Yes (Other)
  Sender: FDA-Public Use
  Company Number: GR-VIANEX-20220307

PATIENT
  Age: 10 Year
  Sex: Female
  Weight: 31.6 kg

DRUGS (4)
  1. DEXAMETHASONE [Suspect]
     Active Substance: DEXAMETHASONE
     Indication: Asthma
     Route: 048
  2. BECLOMETHASONE\FORMOTEROL [Suspect]
     Active Substance: BECLOMETHASONE\FORMOTEROL
     Indication: Asthma
     Dosage: BECLOMETHASONE (STRENGTH: 100 MICROGRAM) AND FORMOTEROL (STRENGTH: 6 MICROGRAM)
     Route: 065
  3. BECLOMETHASONE\FORMOTEROL [Suspect]
     Active Substance: BECLOMETHASONE\FORMOTEROL
     Dosage: BECLOMETHASONE (STRENGTH: 100 MICROGRAM) AND FORMOTEROL (STRENGTH: 6 MICROGRAM)
     Route: 065
  4. BUDESONIDE [Suspect]
     Active Substance: BUDESONIDE
     Indication: Asthma
     Dosage: UP TO THE AGE OF 10 YEARS AND 10 MONTHS
     Route: 045

REACTIONS (1)
  - Growth retardation [Recovered/Resolved]
